FAERS Safety Report 7288601-7 (Version None)
Quarter: 2011Q1

REPORT INFORMATION
  Report Type: 
  Country: None (occurrence: None)
  Receive Date: 20110211
  Receipt Date: 20110209
  Transmission Date: 20110831
  Serious: Yes (Other)
  Sender: FDA-Public Use
  Company Number: US-AMGEN-USASP2011007790

PATIENT
  Age: 48 Year
  Sex: Male

DRUGS (10)
  1. POTASSIUM [Concomitant]
  2. COMPAZINE [Concomitant]
  3. ADVAIR [Concomitant]
     Dosage: UNK
  4. CARBOPLATIN [Concomitant]
     Dosage: UNK
     Dates: start: 20110126
  5. VP-16 [Concomitant]
     Dosage: UNK
     Dates: start: 20110126
  6. ZOFRAN [Concomitant]
     Dosage: UNK
     Dates: start: 20110126
  7. NEULASTA [Suspect]
     Indication: CHEMOTHERAPY
     Dates: start: 20110128, end: 20110130
  8. BENADRYL [Concomitant]
  9. LASIX [Concomitant]
  10. DECADRON [Concomitant]
     Dosage: UNK
     Dates: start: 20110127

REACTIONS (5)
  - THROAT TIGHTNESS [None]
  - DYSPNOEA [None]
  - LIP SWELLING [None]
  - DRUG HYPERSENSITIVITY [None]
  - BONE PAIN [None]
